FAERS Safety Report 9763986 (Version 2)
Quarter: 2014Q1

REPORT INFORMATION
  Report Type: Spontaneous
  Country: US (occurrence: US)
  Receive Date: 20131216
  Receipt Date: 20140313
  Transmission Date: 20141002
  Serious: No
  Sender: FDA-Public Use
  Company Number: US-BIOGENIDEC-2013BI115577

PATIENT
  Age: 64 Year
  Sex: Female

DRUGS (1)
  1. TECFIDERA [Suspect]
     Indication: MULTIPLE SCLEROSIS
     Route: 048
     Dates: start: 201309, end: 201401

REACTIONS (6)
  - Malaise [Unknown]
  - Pyrexia [Unknown]
  - Pain [Unknown]
  - Gastric disorder [Unknown]
  - Drug intolerance [Unknown]
  - Abdominal pain upper [Unknown]
